FAERS Safety Report 23995549 (Version 2)
Quarter: 2024Q3

REPORT INFORMATION
  Report Type: Report from Study
  Country: US (occurrence: US)
  Receive Date: 20240620
  Receipt Date: 20240925
  Transmission Date: 20241017
  Serious: Yes (Other)
  Sender: ABBVIE
  Company Number: US-ABBVIE-5617829

PATIENT
  Age: 56 Year
  Sex: Female

DRUGS (2)
  1. HUMIRA [Suspect]
     Active Substance: ADALIMUMAB
     Indication: Ankylosing spondylitis
     Route: 058
     Dates: start: 20230316, end: 20240104
  2. HUMIRA [Suspect]
     Active Substance: ADALIMUMAB
     Dosage: LAST ADMIN DATE-2024
     Route: 058
     Dates: start: 20240111

REACTIONS (16)
  - Precancerous condition [Unknown]
  - Arthralgia [Unknown]
  - Arthralgia [Unknown]
  - Papilloma viral infection [Unknown]
  - Arthralgia [Recovered/Resolved]
  - COVID-19 [Recovering/Resolving]
  - Pain [Recovered/Resolved]
  - Musculoskeletal stiffness [Unknown]
  - Pain [Unknown]
  - Headache [Unknown]
  - Arthralgia [Unknown]
  - Neck pain [Unknown]
  - Joint stiffness [Unknown]
  - Neck pain [Recovered/Resolved]
  - Uterine cancer [Unknown]
  - Fallopian tube cancer [Unknown]

NARRATIVE: CASE EVENT DATE: 20230601
